FAERS Safety Report 15704632 (Version 1)
Quarter: 2018Q4

REPORT INFORMATION
  Report Type: Report from Study
  Country: US (occurrence: US)
  Receive Date: 20181210
  Receipt Date: 20181210
  Transmission Date: 20190205
  Serious: Yes (Hospitalization)
  Sender: FDA-Public Use
  Company Number: US-BAYER-2018-216608

PATIENT
  Age: 53 Year
  Sex: Female

DRUGS (2)
  1. PEMETREXED. [Suspect]
     Active Substance: PEMETREXED
     Indication: TRIPLE NEGATIVE BREAST CANCER
     Dosage: 375 MG/M2, UNK
     Route: 042
     Dates: start: 20181024, end: 20181119
  2. SORAFENIB (RAF KINASE INHIBITOR) [Suspect]
     Active Substance: SORAFENIB
     Indication: TRIPLE NEGATIVE BREAST CANCER
     Dosage: 200 MG, BID,  DAYS 1-5 OF EACH 21-DAY CYCLE
     Route: 048
     Dates: start: 20181024, end: 20181119

REACTIONS (6)
  - Hypomagnesaemia [None]
  - Dehydration [None]
  - Blood glucose increased [None]
  - Confusional state [None]
  - Tachypnoea [None]
  - Delirium [None]

NARRATIVE: CASE EVENT DATE: 20181119
